FAERS Safety Report 18505825 (Version 1)
Quarter: 2020Q4

REPORT INFORMATION
  Report Type: Spontaneous
  Country: FR (occurrence: FR)
  Receive Date: 20201116
  Receipt Date: 20201116
  Transmission Date: 20210114
  Serious: Yes (Other)
  Sender: FDA-Public Use
  Company Number: NVSC2020FR297350

PATIENT
  Age: 48 Year
  Sex: Male

DRUGS (2)
  1. CYCLOSPORIN [Concomitant]
     Active Substance: CYCLOSPORINE
     Indication: PRODUCT USED FOR UNKNOWN INDICATION
     Dosage: UNK (UNK)
     Route: 065
     Dates: start: 2007, end: 2014
  2. METHOTREXATE. [Suspect]
     Active Substance: METHOTREXATE
     Indication: DERMATITIS ATOPIC
     Dosage: UNK (UNK)
     Route: 065
     Dates: start: 2014, end: 2019

REACTIONS (5)
  - Adenoma benign [Recovering/Resolving]
  - Paratonia [Recovering/Resolving]
  - Off label use [Unknown]
  - Neoplasm malignant [Recovering/Resolving]
  - Appendix cancer [Recovering/Resolving]
